FAERS Safety Report 23357095 (Version 1)
Quarter: 2024Q1

REPORT INFORMATION
  Report Type: Spontaneous
  Country: ES (occurrence: ES)
  Receive Date: 20240102
  Receipt Date: 20240102
  Transmission Date: 20240410
  Serious: Yes (Other)
  Sender: FDA-Public Use
  Company Number: ES-GTI-000046

PATIENT
  Age: 11 Year
  Sex: Female

DRUGS (1)
  1. PREDNISONE [Suspect]
     Active Substance: PREDNISONE
     Indication: Nephrotic syndrome
     Route: 048

REACTIONS (5)
  - Nephrotic syndrome [Unknown]
  - Haematuria [Unknown]
  - Disease recurrence [Unknown]
  - Gene mutation [Unknown]
  - Alport^s syndrome [Unknown]
